FAERS Safety Report 21937027 (Version 1)
Quarter: 2023Q1

REPORT INFORMATION
  Report Type: Spontaneous
  Country: US (occurrence: US)
  Receive Date: 20230201
  Receipt Date: 20230201
  Transmission Date: 20230418
  Serious: No
  Sender: FDA-Public Use
  Company Number: US-TEVA-2023-US-2848048

PATIENT
  Sex: Male

DRUGS (1)
  1. BUPRENORPHINE [Suspect]
     Active Substance: BUPRENORPHINE
     Indication: Product used for unknown indication
     Dosage: STRENGTH: 15 MCG / HR
     Route: 062
     Dates: start: 2022

REACTIONS (3)
  - Malabsorption from application site [Unknown]
  - Wrong technique in device usage process [Unknown]
  - Product adhesion issue [Unknown]
